FAERS Safety Report 9908675 (Version 3)
Quarter: 2014Q2

REPORT INFORMATION
  Report Type: Report from Study
  Country: JP (occurrence: JP)
  Receive Date: 20140219
  Receipt Date: 20140402
  Transmission Date: 20141212
  Serious: Yes (Hospitalization, Disabling)
  Sender: FDA-Public Use
  Company Number: JP-ROCHE-1319817

PATIENT
  Age: 66 Year
  Sex: Female
  Weight: 35.5 kg

DRUGS (9)
  1. TRASTUZUMAB [Suspect]
     Indication: HER-2 POSITIVE BREAST CANCER
     Dosage: LOADING DOSE
     Route: 042
     Dates: start: 20130920
  2. TRASTUZUMAB [Suspect]
     Dosage: DATE OF LAST DOSE PRIOR TO SAE: 24/JAN/2014?MAINTAINANCE DOSE
     Route: 042
     Dates: end: 20140221
  3. DOCETAXEL [Suspect]
     Indication: HER-2 POSITIVE BREAST CANCER
     Dosage: DATE OF LAST DOSE PRIOR TO SAE: 22/NOV/2013
     Route: 042
     Dates: start: 20130920, end: 20140221
  4. REBAMIPIDE [Concomitant]
     Route: 065
     Dates: start: 20130930
  5. MECOBALAMIN [Concomitant]
     Route: 065
     Dates: start: 20130920
  6. DOMPERIDON [Concomitant]
     Route: 065
     Dates: start: 20130617
  7. MAGNESIUM OXIDE [Concomitant]
     Route: 065
     Dates: start: 20130611
  8. PERTUZUMAB [Suspect]
     Indication: HER-2 POSITIVE BREAST CANCER
     Dosage: LOADING DOSE
     Route: 042
     Dates: start: 20130920
  9. PERTUZUMAB [Suspect]
     Dosage: DATE OF LAST DOSE PRIOR TO SAE: 22/NOV/2013?MAINTENANCE DOSE
     Route: 042

REACTIONS (8)
  - Cerebral haemorrhage [Recovering/Resolving]
  - Subarachnoid haemorrhage [Recovering/Resolving]
  - Decreased appetite [Recovered/Resolved]
  - Diarrhoea [Recovered/Resolved]
  - Vomiting [Recovered/Resolved]
  - Gastric ulcer [Recovering/Resolving]
  - Duodenal ulcer [Recovering/Resolving]
  - Obstruction gastric [Recovering/Resolving]
